FAERS Safety Report 4286694-2 (Version None)
Quarter: 2004Q1

REPORT INFORMATION
  Report Type: 
  Country: None (occurrence: None)
  Receive Date: 20040206
  Receipt Date: 20040119
  Transmission Date: 20041129
  Serious: Yes (Death, Hospitalization)
  Sender: FDA-Public Use
  Company Number: CA-BRISTOL-MYERS SQUIBB COMPANY-12481099

PATIENT
  Age: 61 Year
  Sex: Male

DRUGS (18)
  1. ATAZANAVIR [Suspect]
     Indication: HIV INFECTION
     Dosage: DIED ON 26-JAN-2004
     Route: 048
     Dates: start: 20030326
  2. VIDEX [Concomitant]
     Indication: HIV INFECTION
     Dosage: DIED ON 26-JAN-2004.
     Dates: start: 20030326
  3. ABACAVIR [Concomitant]
     Indication: HIV INFECTION
     Dosage: DIED ON 26-JAN-2004
     Dates: start: 20030326
  4. ALPHAGAN [Concomitant]
     Dosage: DIED ON 26-JAN-2004.
     Dates: start: 20000301
  5. CALCIUM CARBONATE [Concomitant]
     Dosage: DIED ON 26-JAN-2004.
     Dates: start: 20031001
  6. CLONAZEPAM [Concomitant]
     Dosage: DIED ON 26-JAN-2004.
  7. COSOPT [Concomitant]
     Dosage: DIED ON 26-JAN-2004.
  8. DIOVAN [Concomitant]
     Dosage: DIED ON 26-JAN-2004.
     Dates: start: 20020918
  9. FLOMAX [Concomitant]
     Dosage: DIED ON 26-JAN-2004.
     Dates: start: 20031030
  10. FOSAMAX [Concomitant]
     Dosage: DIED ON 26-JAN-2004.
     Dates: start: 20031001
  11. GLYBURIDE [Concomitant]
     Dosage: DIED ON 26-JAN-2004.
     Dates: start: 20021004
  12. KEFLEX [Concomitant]
     Dosage: DIED ON 26-JAN-2004
     Dates: start: 20040120
  13. METFORMIN HCL [Concomitant]
     Dosage: DIED ON 26-JAN-2004.
     Dates: start: 20030507
  14. OCUFEN [Concomitant]
  15. PAXIL [Concomitant]
     Dosage: DIED ON 26-JAN-2004.
     Dates: start: 19990101
  16. TYLENOL W/ CODEINE NO. 2 [Concomitant]
     Dosage: DIED ON 26-JAN-2004
     Dates: start: 20031118
  17. VITAMIN D [Concomitant]
     Dosage: DIED ON 26-JAN-2004.
     Dates: start: 20031001
  18. WELLBUTRIN SR [Concomitant]
     Dosage: DIED ON 26-JAN-2004.
     Dates: start: 20040106

REACTIONS (8)
  - ADRENAL ADENOMA [None]
  - APPENDICITIS [None]
  - CARDIAC ENZYMES INCREASED [None]
  - CHEST PAIN [None]
  - COMA [None]
  - DEATH [None]
  - ISCHAEMIA [None]
  - SKELETAL INJURY [None]
